FAERS Safety Report 5675417-8 (Version None)
Quarter: 2008Q1

REPORT INFORMATION
  Report Type: 
  Country: None (occurrence: None)
  Receive Date: 20080320
  Receipt Date: 20080310
  Transmission Date: 20080703
  Serious: Yes (Hospitalization, Other)
  Sender: FDA-Public Use
  Company Number: US-AMGEN-STX268940

PATIENT
  Sex: Male

DRUGS (2)
  1. ENBREL [Suspect]
     Indication: RHEUMATOID ARTHRITIS
     Route: 058
     Dates: start: 20030120
  2. METHOTREXATE [Concomitant]
     Route: 048

REACTIONS (4)
  - BACK PAIN [None]
  - EPISTAXIS [None]
  - HAEMORRHAGE [None]
  - WEIGHT DECREASED [None]
